FAERS Safety Report 21688112 (Version 3)
Quarter: 2023Q1

REPORT INFORMATION
  Report Type: Report from Study
  Country: AU (occurrence: AU)
  Receive Date: 20221206
  Receipt Date: 20230106
  Transmission Date: 20230417
  Serious: Yes (Other)
  Sender: FDA-Public Use
  Company Number: AU-002147023-NVSC2022AU277180

PATIENT
  Age: 53 Year
  Sex: Female

DRUGS (1)
  1. MAYZENT [Suspect]
     Active Substance: SIPONIMOD
     Indication: Secondary progressive multiple sclerosis
     Dosage: 1 MG, QD (TITRATION DAY 1)
     Route: 048
     Dates: start: 20221129

REACTIONS (15)
  - Seizure [Unknown]
  - Limb discomfort [Unknown]
  - Feeling abnormal [Unknown]
  - Paraesthesia [Unknown]
  - Pain [Unknown]
  - Stress [Unknown]
  - Rash erythematous [Recovered/Resolved]
  - Pruritus [Recovered/Resolved]
  - Contusion [Unknown]
  - Wound [Unknown]
  - Impaired healing [Unknown]
  - Decreased appetite [Unknown]
  - Abdominal distension [Unknown]
  - Weight increased [Unknown]
  - Headache [Unknown]

NARRATIVE: CASE EVENT DATE: 20221129
